FAERS Safety Report 12623500 (Version 1)
Quarter: 2016Q3

REPORT INFORMATION
  Report Type: Spontaneous
  Country: HR (occurrence: HR)
  Receive Date: 20160804
  Receipt Date: 20160804
  Transmission Date: 20161109
  Serious: Yes (Other)
  Sender: FDA-Public Use
  Company Number: HR-SA-2016SA135166

PATIENT
  Age: 80 Year
  Sex: Female

DRUGS (3)
  1. CARVETREND [Concomitant]
     Active Substance: CARVEDILOL
     Indication: ESSENTIAL HYPERTENSION
     Route: 048
  2. FEXOFENADINE [Suspect]
     Active Substance: FEXOFENADINE\FEXOFENADINE HYDROCHLORIDE
     Indication: DERMATITIS ALLERGIC
     Route: 048
     Dates: start: 20160516, end: 20160530
  3. NORVASC [Concomitant]
     Active Substance: AMLODIPINE BESYLATE
     Indication: ESSENTIAL HYPERTENSION
     Route: 048

REACTIONS (4)
  - Swelling face [Recovering/Resolving]
  - Generalised erythema [Recovering/Resolving]
  - Paraesthesia oral [Recovering/Resolving]
  - Swollen tongue [Recovering/Resolving]

NARRATIVE: CASE EVENT DATE: 20160516
